FAERS Safety Report 6840163-1 (Version None)
Quarter: 2010Q3

REPORT INFORMATION
  Report Type: 
  Country: None (occurrence: None)
  Receive Date: 20100713
  Receipt Date: 20100713
  Transmission Date: 20110219
  Serious: No
  Sender: FDA-Public Use
  Company Number: None

PATIENT
  Sex: Female
  Weight: 121.564 kg

DRUGS (1)
  1. ADIPEX [Suspect]
     Indication: PALPITATIONS
     Dosage: 15 MG ONCE DAILY PO
     Route: 048
     Dates: start: 20100401, end: 20100601

REACTIONS (12)
  - ABDOMINAL PAIN [None]
  - BACK PAIN [None]
  - DISTURBANCE IN ATTENTION [None]
  - DYSPNOEA [None]
  - HEADACHE [None]
  - HEART RATE INCREASED [None]
  - HYPERPHAGIA [None]
  - IMPAIRED WORK ABILITY [None]
  - LETHARGY [None]
  - SUPRAVENTRICULAR EXTRASYSTOLES [None]
  - TREMOR [None]
  - WEIGHT INCREASED [None]
